FAERS Safety Report 11806220 (Version 1)
Quarter: 2015Q4

REPORT INFORMATION
  Report Type: Spontaneous
  Country: US (occurrence: None)
  Receive Date: 20151204
  Receipt Date: 20151204
  Transmission Date: 20160305
  Serious: No
  Sender: FDA-Public Use
  Company Number: None

PATIENT
  Age: 59 Year
  Sex: Female
  Weight: 71.22 kg

DRUGS (1)
  1. VALSARTAN 160MG NA [Suspect]
     Active Substance: VALSARTAN
     Indication: HYPERTENSION
     Dosage: 30  QD  ORAL
     Route: 048
     Dates: start: 20150918, end: 20150921

REACTIONS (2)
  - Dizziness [None]
  - Paraesthesia [None]

NARRATIVE: CASE EVENT DATE: 20150918
